FAERS Safety Report 7383488-6 (Version None)
Quarter: 2011Q1

REPORT INFORMATION
  Report Type: 
  Country: None (occurrence: None)
  Receive Date: 20110330
  Receipt Date: 20110321
  Transmission Date: 20110831
  Serious: Yes (Hospitalization)
  Sender: FDA-Public Use
  Company Number: AU-ELI_LILLY_AND_COMPANY-AU201103006027

PATIENT

DRUGS (8)
  1. ZYPREXA [Suspect]
     Dosage: 10 MG, QD
     Route: 063
  2. SERTRALINE HYDROCHLORIDE [Concomitant]
     Route: 063
  3. METHYLDOPA [Concomitant]
     Route: 063
  4. METHYLDOPA [Concomitant]
     Route: 063
  5. ZYPREXA [Suspect]
     Dosage: 10 MG, QD
     Route: 063
  6. CHLORPROMAZINE HYDROCHLORIDE [Concomitant]
     Route: 063
  7. SERTRALINE HYDROCHLORIDE [Concomitant]
     Route: 063
  8. CHLORPROMAZINE HYDROCHLORIDE [Concomitant]
     Route: 063

REACTIONS (5)
  - DRUG WITHDRAWAL SYNDROME NEONATAL [None]
  - MUSCLE TWITCHING [None]
  - DRUG EXPOSURE VIA BREAST MILK [None]
  - CONVULSION NEONATAL [None]
  - NERVOUSNESS [None]
